FAERS Safety Report 15792503 (Version 1)
Quarter: 2019Q1

REPORT INFORMATION
  Report Type: Spontaneous
  Country: CN (occurrence: CN)
  Receive Date: 20190107
  Receipt Date: 20190107
  Transmission Date: 20190417
  Serious: Yes (Other)
  Sender: FDA-Public Use
  Company Number: CN-ROCHE-2238850

PATIENT
  Age: 55 Year
  Sex: Male

DRUGS (20)
  1. OXALIPLATIN. [Concomitant]
     Active Substance: OXALIPLATIN
     Dosage: 200MG, D1, 8 CYCLES
     Route: 065
     Dates: start: 201411, end: 201505
  2. OXALIPLATIN. [Concomitant]
     Active Substance: OXALIPLATIN
     Route: 065
     Dates: start: 20160302
  3. 5-FLUOROURACIL [Concomitant]
     Active Substance: FLUOROURACIL
     Route: 065
     Dates: start: 20160302
  4. OXALIPLATIN. [Concomitant]
     Active Substance: OXALIPLATIN
     Dosage: 2 CYCLES
     Route: 065
     Dates: start: 20170202, end: 20170302
  5. MITOMYCIN. [Concomitant]
     Active Substance: MITOMYCIN
     Indication: METASTASES TO LIVER
     Route: 065
     Dates: start: 20160302
  6. TEGAFUR [Concomitant]
     Active Substance: TEGAFUR
     Dosage: 5 CYCLES
     Route: 065
     Dates: start: 201604, end: 201607
  7. NIVOLUMAB [Concomitant]
     Active Substance: NIVOLUMAB
     Dosage: 200/240MG, Q14D, 3 TIMES
     Route: 065
     Dates: start: 20161122, end: 20161220
  8. OXALIPLATIN. [Concomitant]
     Active Substance: OXALIPLATIN
     Dosage: 5 CYCLES
     Route: 065
     Dates: start: 201604, end: 201607
  9. RALTITREXED [Concomitant]
     Active Substance: RALTITREXED
     Dosage: Q21D, 2 CYCLES
     Route: 065
     Dates: start: 201610, end: 201611
  10. CAPECITABINE. [Suspect]
     Active Substance: CAPECITABINE
     Indication: METASTASES TO LIVER
  11. 5-FLUOROURACIL [Concomitant]
     Active Substance: FLUOROURACIL
     Route: 042
     Dates: start: 201506, end: 201508
  12. IRINOTECAN [Concomitant]
     Active Substance: IRINOTECAN
     Dosage: D1, 8 CYCLES
     Route: 065
     Dates: start: 201509, end: 201602
  13. BEVACIZUMAB. [Suspect]
     Active Substance: BEVACIZUMAB
     Indication: METASTASES TO LYMPH NODES
     Dosage: D1, 8 CYCLES
     Route: 065
     Dates: start: 201509, end: 201602
  14. BEVACIZUMAB. [Suspect]
     Active Substance: BEVACIZUMAB
     Indication: METASTASES TO LIVER
     Dosage: D1, 4 CYCLES
     Route: 065
     Dates: start: 201506, end: 201508
  15. 5-FLUOROURACIL [Concomitant]
     Active Substance: FLUOROURACIL
     Dosage: D1 2, 8 CYCLES
     Route: 042
     Dates: start: 201509, end: 201602
  16. BEVACIZUMAB. [Suspect]
     Active Substance: BEVACIZUMAB
     Indication: ADENOCARCINOMA OF COLON
     Dosage: D1, 8 CYCLES
     Route: 065
     Dates: start: 201411, end: 201505
  17. CAPECITABINE. [Suspect]
     Active Substance: CAPECITABINE
     Indication: ADENOCARCINOMA OF COLON
     Dosage: 2 CYCLES
     Route: 065
     Dates: start: 20170207, end: 20170302
  18. CAPECITABINE. [Suspect]
     Active Substance: CAPECITABINE
     Indication: METASTASES TO LYMPH NODES
  19. 5-FLUOROURACIL [Concomitant]
     Active Substance: FLUOROURACIL
     Dosage: 1.5G/M2, DAY, 8 CYCLES
     Route: 042
     Dates: start: 201411, end: 201505
  20. LEUCOVORIN. [Concomitant]
     Active Substance: LEUCOVORIN
     Indication: METASTASES TO LIVER
     Route: 065
     Dates: start: 20160302

REACTIONS (5)
  - Hypoaesthesia [Unknown]
  - Nausea [Unknown]
  - Fatigue [Unknown]
  - Bone marrow disorder [Unknown]
  - Gastrointestinal disorder [Unknown]
